FAERS Safety Report 5234563-3 (Version None)
Quarter: 2007Q1

REPORT INFORMATION
  Report Type: 
  Country: None (occurrence: None)
  Receive Date: 20070209
  Receipt Date: 20070130
  Transmission Date: 20070707
  Serious: Yes (Other)
  Sender: FDA-Public Use
  Company Number: PE-SANOFI-SYNTHELABO-A01200701026

PATIENT
  Age: 97 Year
  Sex: Male

DRUGS (4)
  1. KINABIDE [Concomitant]
     Indication: PARKINSON'S DISEASE
     Route: 048
  2. TRENTAL [Concomitant]
     Indication: PERIPHERAL ARTERIAL OCCLUSIVE DISEASE
     Route: 048
  3. CILOSTAL [Suspect]
     Indication: PERIPHERAL ARTERIAL OCCLUSIVE DISEASE
     Dosage: UNK
     Route: 048
     Dates: start: 20061201, end: 20070101
  4. PLAVIX [Suspect]
     Indication: PERIPHERAL ARTERIAL OCCLUSIVE DISEASE
     Route: 048
     Dates: start: 20061201, end: 20061201

REACTIONS (2)
  - HAEMATOMA [None]
  - PEMPHIGUS [None]
